FAERS Safety Report 5278868-9 (Version None)
Quarter: 2007Q1

REPORT INFORMATION
  Report Type: 
  Country: None (occurrence: None)
  Receive Date: 20070328
  Receipt Date: 20070323
  Transmission Date: 20070707
  Serious: Yes (Life-Threatening, Hospitalization)
  Sender: FDA-Public Use
  Company Number: 2007SE01521

PATIENT
  Age: 8258 Day
  Sex: Female

DRUGS (3)
  1. SEROQUEL [Suspect]
     Route: 048
     Dates: start: 20060811
  2. SEROQUEL [Suspect]
     Route: 048
     Dates: start: 20070315, end: 20070315
  3. PAROXETINE HCL [Suspect]
     Route: 048
     Dates: start: 20070315, end: 20070315

REACTIONS (2)
  - INTENTIONAL OVERDOSE [None]
  - SUICIDE ATTEMPT [None]
